FAERS Safety Report 15742472 (Version 1)
Quarter: 2018Q4

REPORT INFORMATION
  Report Type: Spontaneous
  Country: FR (occurrence: FR)
  Receive Date: 20181219
  Receipt Date: 20181219
  Transmission Date: 20190205
  Serious: Yes (Hospitalization)
  Sender: FDA-Public Use
  Company Number: PHHY2018FR188114

PATIENT
  Age: 15 Year
  Sex: Female
  Weight: 48 kg

DRUGS (6)
  1. DAFALGAN [Suspect]
     Active Substance: ACETAMINOPHEN
     Indication: SUICIDE ATTEMPT
     Dosage: UNK
     Route: 048
  2. VOLTARENE (DICLOFENAC SODIUM) [Suspect]
     Active Substance: DICLOFENAC SODIUM
     Indication: SUICIDE ATTEMPT
     Dosage: UNK
     Route: 048
  3. ADVIL [Suspect]
     Active Substance: IBUPROFEN
     Indication: SUICIDE ATTEMPT
     Dosage: UNK
     Route: 048
  4. LEXOMIL [Suspect]
     Active Substance: BROMAZEPAM
     Indication: SUICIDE ATTEMPT
     Dosage: UNK
     Route: 048
  5. SPIFEN [Suspect]
     Active Substance: IBUPROFEN
     Indication: SUICIDE ATTEMPT
     Dosage: UNK
     Route: 048
  6. SOLUPRED (METHYLPREDNISOLONE) [Suspect]
     Active Substance: METHYLPREDNISOLONE
     Indication: SUICIDE ATTEMPT
     Dosage: UNK
     Route: 048

REACTIONS (2)
  - Acute kidney injury [Recovered/Resolved]
  - Coma [Recovered/Resolved]

NARRATIVE: CASE EVENT DATE: 20181111
